FAERS Safety Report 8900577 (Version 1)
Quarter: 2012Q4

REPORT INFORMATION
  Report Type: 
  Country: CA (occurrence: CA)
  Receive Date: 20121109
  Receipt Date: 20121109
  Transmission Date: 20130627
  Serious: Yes (Other)
  Sender: FDA-Public Use
  Company Number: PHBS2001CA04602

PATIENT
  Age: 80 Year
  Sex: Female

DRUGS (2)
  1. EXELON [Suspect]
     Indication: DEMENTIA ALZHEIMER^S TYPE
     Dosage: 3 mg, BID
     Route: 048
     Dates: start: 20010322
  2. EXELON [Suspect]
     Route: 048
     Dates: start: 20010421

REACTIONS (6)
  - Fall [Unknown]
  - Arrhythmia [Recovering/Resolving]
  - Syncope [Recovering/Resolving]
  - Gait disturbance [Recovering/Resolving]
  - Decreased appetite [Not Recovered/Not Resolved]
  - Fatigue [Not Recovered/Not Resolved]
